FAERS Safety Report 9106682 (Version 2)
Quarter: 2013Q1

REPORT INFORMATION
  Report Type: Spontaneous
  Country: DE (occurrence: DE)
  Receive Date: 20130221
  Receipt Date: 20130228
  Transmission Date: 20140127
  Serious: Yes (Other)
  Sender: FDA-Public Use
  Company Number: DE-ROCHE-1191576

PATIENT
  Age: 52 Year
  Sex: Female

DRUGS (7)
  1. XOLAIR [Suspect]
     Indication: ASTHMA
     Dosage: 375 IU/ML
     Route: 065
     Dates: start: 2000
  2. XOLAIR [Suspect]
     Dosage: 450 IU/ML; DOSE INCREASED
     Route: 065
     Dates: start: 201109, end: 201109
  3. XOLAIR [Suspect]
     Route: 065
     Dates: start: 201201
  4. FORADIL [Suspect]
     Indication: ASTHMA
     Route: 065
  5. PREDNISOLON [Concomitant]
     Dosage: REDUCED
     Route: 065
  6. PREDNISOLON [Concomitant]
     Route: 065
  7. FLUTIDE [Concomitant]

REACTIONS (6)
  - Asthma [Recovering/Resolving]
  - Nasal polyps [Recovering/Resolving]
  - Decreased appetite [Recovering/Resolving]
  - Urticaria [Unknown]
  - Pruritus [Unknown]
  - Pulmonary function test decreased [Recovering/Resolving]
